FAERS Safety Report 7657262-7 (Version None)
Quarter: 2011Q3

REPORT INFORMATION
  Report Type: 
  Country: None (occurrence: None)
  Receive Date: 20110804
  Receipt Date: 20110722
  Transmission Date: 20111222
  Serious: Yes (Other)
  Sender: FDA-Public Use
  Company Number: PHHY2011JP35436

PATIENT
  Sex: Male

DRUGS (5)
  1. TASIGNA [Suspect]
     Dosage: 400 MG, UNK
     Route: 048
     Dates: start: 20110303
  2. ADONA [Concomitant]
     Dosage: 60 MG, UNK
     Route: 048
     Dates: start: 20080927
  3. MAGNESIUM OXIDE [Concomitant]
     Dosage: 0.5 G, UNK
     Route: 048
  4. GLORIAMIN [Concomitant]
     Dosage: 2.0 G, UNK
     Route: 048
     Dates: start: 20080927
  5. TASIGNA [Suspect]
     Indication: CHRONIC MYELOID LEUKAEMIA
     Dosage: 800 MG, UNK
     Route: 048
     Dates: start: 20110113, end: 20110130

REACTIONS (3)
  - LIVER DISORDER [None]
  - BLOOD PHOSPHORUS DECREASED [None]
  - PLATELET COUNT DECREASED [None]
